FAERS Safety Report 4726886-9 (Version None)
Quarter: 2005Q3

REPORT INFORMATION
  Report Type: 
  Country: None (occurrence: None)
  Receive Date: 20050726
  Receipt Date: 20050329
  Transmission Date: 20060218
  Serious: Yes (Hospitalization)
  Sender: FDA-Public Use
  Company Number: 805#1#2005-00016

PATIENT
  Age: 80 Year
  Sex: Male

DRUGS (10)
  1. PROSTANDIN                            (ALPROSTADIL (PAOD)) [Suspect]
     Indication: LUMBAR SPINAL STENOSIS
     Dosage: 120 MCG (60MCG 2 IN 1 DAY(S);INTRAVENOUS DRIP
     Route: 041
     Dates: start: 20050204, end: 20050210
  2. BENZBROMARONE [Concomitant]
  3. CHIMAPHILA-UMBELLATA-EXT./POPULUS-TREMULA-EXT/PULSATILLA-PRATENSIS MIL [Concomitant]
  4. EXTRACT-FROM-INFLAMM.-RABBIT-SKIN-INOCULATED-BY-VACCINIA-VIRUS (ORGAN [Concomitant]
  5. ALLOPURINOL [Concomitant]
  6. SODIUM AZULENE SULFONATE     (LEVOGLUTAMIDE, SODIUM GUALENATE) [Concomitant]
  7. CHLORMADINONE ACETATE TAB [Concomitant]
  8. ETODOLAC [Concomitant]
  9. TRIAZOLAM [Concomitant]
  10. SODIUM BICARBONATE [Concomitant]

REACTIONS (10)
  - CARDIAC FAILURE [None]
  - CARDIOMEGALY [None]
  - DIFFICULTY IN WALKING [None]
  - INFECTION [None]
  - OEDEMA PERIPHERAL [None]
  - PALPITATIONS [None]
  - PARESIS [None]
  - PERICARDIAL EFFUSION [None]
  - PLEURAL EFFUSION [None]
  - URINARY INCONTINENCE [None]
